FAERS Safety Report 4509565-2 (Version None)
Quarter: 2004Q4

REPORT INFORMATION
  Report Type: 
  Country: None (occurrence: None)
  Receive Date: 20041119
  Receipt Date: 20041102
  Transmission Date: 20050328
  Serious: Yes (Hospitalization, Disabling)
  Sender: FDA-Public Use
  Company Number: 9225

PATIENT

DRUGS (1)
  1. METHOTREXATE [Suspect]
     Indication: ACUTE LEUKAEMIA

REACTIONS (1)
  - PARALYSIS [None]
